FAERS Safety Report 13739194 (Version 1)
Quarter: 2017Q3

REPORT INFORMATION
  Report Type: Report from Study
  Country: US (occurrence: US)
  Receive Date: 20170710
  Receipt Date: 20170710
  Transmission Date: 20171127
  Serious: No
  Sender: FDA-Public Use
  Company Number: US-SAOL THERAPEUTICS-2017SAO00180

PATIENT
  Age: 62 Year
  Sex: Male

DRUGS (6)
  1. COMPOUNDED BACLOFEN [Suspect]
     Active Substance: BACLOFEN
     Dosage: 239.83 ?G, \DAY
     Route: 037
     Dates: start: 20161117
  2. COMPOUNDED BACLOFEN [Suspect]
     Active Substance: BACLOFEN
     Dosage: 357.99 ?G, \DAY
     Route: 037
     Dates: start: 20161117
  3. BUPIVACAINE. [Suspect]
     Active Substance: BUPIVACAINE
     Dosage: 8.95 MG, \DAY
     Route: 037
     Dates: start: 20161117
  4. BUPIVACAINE. [Suspect]
     Active Substance: BUPIVACAINE
     Dosage: 5.996 MG, \DAY
     Route: 037
     Dates: start: 20161117
  5. FENTANYL. [Suspect]
     Active Substance: FENTANYL
     Dosage: 89.94 ?G, \DAY
     Route: 037
     Dates: start: 20161117
  6. FENTANYL. [Suspect]
     Active Substance: FENTANYL
     Dosage: 134.25 ?G, \DAY
     Route: 037
     Dates: start: 20161117

REACTIONS (1)
  - Medical device site pain [Recovered/Resolved]

NARRATIVE: CASE EVENT DATE: 20160710
